FAERS Safety Report 6454836-6 (Version None)
Quarter: 2009Q4

REPORT INFORMATION
  Report Type: 
  Country: None (occurrence: None)
  Receive Date: 20091124
  Receipt Date: 20091117
  Transmission Date: 20100525
  Serious: Yes (Hospitalization, Other)
  Sender: FDA-Public Use
  Company Number: US-PFIZER INC-2009298955

PATIENT
  Sex: Male
  Weight: 70 kg

DRUGS (3)
  1. GEODON [Suspect]
     Indication: SCHIZOPHRENIA
     Dosage: UNK
     Route: 048
     Dates: start: 20050101
  2. GEODON [Suspect]
     Indication: BIPOLAR DISORDER
  3. GEODON [Suspect]
     Indication: ANXIETY

REACTIONS (2)
  - ANXIETY [None]
  - IRRITABILITY [None]
